FAERS Safety Report 14970633 (Version 1)
Quarter: 2018Q2

REPORT INFORMATION
  Report Type: Spontaneous
  Country: ES (occurrence: ES)
  Receive Date: 20180604
  Receipt Date: 20180604
  Transmission Date: 20180711
  Serious: Yes (Other)
  Sender: FDA-Public Use
  Company Number: ES-MYLANLABS-2018M1037018

PATIENT
  Age: 7 Decade
  Sex: Male

DRUGS (2)
  1. ERLOTINIB [Suspect]
     Active Substance: ERLOTINIB
     Indication: LUNG ADENOCARCINOMA
     Route: 065
     Dates: start: 201106
  2. ROCILETINIB [Suspect]
     Active Substance: ROCILETINIB
     Indication: LUNG ADENOCARCINOMA
     Route: 065
     Dates: start: 201512

REACTIONS (1)
  - Drug resistance [Unknown]
